FAERS Safety Report 18793607 (Version 1)
Quarter: 2021Q1

REPORT INFORMATION
  Report Type: Spontaneous
  Country: US (occurrence: US)
  Receive Date: 20210126
  Receipt Date: 20210126
  Transmission Date: 20210419
  Serious: Yes (Other)
  Sender: FDA-Public Use
  Company Number: None

PATIENT
  Age: 64 Year
  Sex: Female

DRUGS (12)
  1. SIMVASTATIN. [Concomitant]
     Active Substance: SIMVASTATIN
  2. XOLAIR [Suspect]
     Active Substance: OMALIZUMAB
     Indication: IDIOPATHIC URTICARIA
     Route: 058
     Dates: start: 20200227
  3. LEVALVUTEROL AER [Concomitant]
  4. EPINEPHRINE. [Concomitant]
     Active Substance: EPINEPHRINE
  5. ESZOPICLONE. [Concomitant]
     Active Substance: ESZOPICLONE
  6. MOMETASONE SOL [Concomitant]
  7. LEVOTHYROXIN [Concomitant]
     Active Substance: LEVOTHYROXINE
  8. PAZEO [Concomitant]
     Active Substance: OLOPATADINE HYDROCHLORIDE
  9. FAMOTIDINE. [Concomitant]
     Active Substance: FAMOTIDINE
  10. TRAZODONE [Concomitant]
     Active Substance: TRAZODONE HYDROCHLORIDE
  11. HYDROCHLOROT [Concomitant]
     Active Substance: HYDROCHLOROTHIAZIDE
  12. NITROFURANTN [Concomitant]
     Active Substance: NITROFURANTOIN

REACTIONS (7)
  - Heart rate increased [None]
  - Blood pressure increased [None]
  - Fatigue [None]
  - Constipation [None]
  - Chills [None]
  - Muscular weakness [None]
  - Abdominal pain [None]

NARRATIVE: CASE EVENT DATE: 20210119
